FAERS Safety Report 4550504-6 (Version None)
Quarter: 2004Q4

REPORT INFORMATION
  Report Type: 
  Country: None (occurrence: None)
  Receive Date: 20041217
  Receipt Date: 20040917
  Transmission Date: 20050328
  Serious: No
  Sender: FDA-Public Use
  Company Number: 2004-BP-08496BP

PATIENT
  Age: 75 Year
  Sex: Female

DRUGS (9)
  1. SPIRIVA [Suspect]
     Indication: CHRONIC OBSTRUCTIVE AIRWAYS DISEASE
     Dosage: 18 MCG (18 MCG), IH
     Route: 055
     Dates: start: 20040706
  2. ADVAIR (SERETIDE MITE) [Concomitant]
  3. MAXAIR [Concomitant]
  4. OXYGEN (OXYGEN) [Concomitant]
  5. LIPITOR [Concomitant]
  6. ZETIA [Concomitant]
  7. WARFARIN (WARFARIN) [Concomitant]
  8. LOTREL (LOTREL) [Concomitant]
  9. CARDIZEM [Concomitant]

REACTIONS (1)
  - URINARY TRACT INFECTION [None]
